FAERS Safety Report 4853756-8 (Version None)
Quarter: 2005Q4

REPORT INFORMATION
  Report Type: 
  Country: None (occurrence: None)
  Receive Date: 20051212
  Receipt Date: 20051128
  Transmission Date: 20060501
  Serious: Yes (Hospitalization, Other)
  Sender: FDA-Public Use
  Company Number: USA-2005-0020847

PATIENT
  Age: 46 Year
  Sex: Male
  Weight: 90.7 kg

DRUGS (26)
  1. OXYCONTIN [Suspect]
     Indication: PAIN
     Dosage: SEE IMAGE
  2. OXYCODONE HCL [Concomitant]
  3. LIBRIUM ^HOFFMAN^ (CHLORDIAZEPOXIDE HYDROCHLORIDE) [Concomitant]
  4. WELLBUTRIN SR [Concomitant]
  5. SONATA [Concomitant]
  6. BACLOFEN [Concomitant]
  7. SUDAFED 12 HOUR [Concomitant]
  8. AFRIN NASAL SPRAY (OXYMETAZOLINE HYDROCHLORIDE) [Concomitant]
  9. ALBUTEROL [Concomitant]
  10. NORFLEX [Concomitant]
  11. BUSPAR [Concomitant]
  12. INDERAL [Concomitant]
  13. VIOXX [Concomitant]
  14. NEURONTIN [Concomitant]
  15. VICOPROFEN [Concomitant]
  16. FUROSEMIDE [Concomitant]
  17. RELAFEN [Concomitant]
  18. SEROQUEL [Concomitant]
  19. CATAPRES [Concomitant]
  20. RESTORIL [Concomitant]
  21. LEVAQUIN [Concomitant]
  22. HYDROCODONE [Concomitant]
  23. SOMA [Concomitant]
  24. AMBIEN [Concomitant]
  25. ALLEGRA [Concomitant]
  26. ATIVAN [Concomitant]

REACTIONS (76)
  - ABDOMINAL PAIN [None]
  - ABNORMAL BEHAVIOUR [None]
  - AFFECT LABILITY [None]
  - AGGRESSION [None]
  - AGITATION [None]
  - ANAEMIA MACROCYTIC [None]
  - ANGER [None]
  - ANTISOCIAL BEHAVIOUR [None]
  - ANXIETY [None]
  - ARTHRALGIA [None]
  - ASTHENIA [None]
  - BACK PAIN [None]
  - BLOOD PRESSURE FLUCTUATION [None]
  - BLOOD SODIUM INCREASED [None]
  - CHEST DISCOMFORT [None]
  - CHEST PAIN [None]
  - CONFUSIONAL STATE [None]
  - CRYING [None]
  - DECREASED APPETITE [None]
  - DECREASED INTEREST [None]
  - DELUSION [None]
  - DELUSIONAL DISORDER, UNSPECIFIED TYPE [None]
  - DEPRESSION [None]
  - DIARRHOEA [None]
  - DISORIENTATION [None]
  - DISTURBANCE IN ATTENTION [None]
  - DRUG ABUSER [None]
  - DRUG DEPENDENCE [None]
  - DRUG INEFFECTIVE [None]
  - DRUG TOLERANCE [None]
  - DRUG WITHDRAWAL SYNDROME [None]
  - DYSARTHRIA [None]
  - DYSPHORIA [None]
  - DYSPNOEA [None]
  - DYSTHYMIC DISORDER [None]
  - FATIGUE [None]
  - FRUSTRATION [None]
  - HALLUCINATION, TACTILE [None]
  - HALLUCINATION, VISUAL [None]
  - HOMICIDAL IDEATION [None]
  - HOSTILITY [None]
  - IMPULSE-CONTROL DISORDER [None]
  - INADEQUATE ANALGESIA [None]
  - INSOMNIA [None]
  - INTENTIONAL DRUG MISUSE [None]
  - IRRITABILITY [None]
  - LUMBAR RADICULOPATHY [None]
  - MYALGIA [None]
  - NAUSEA [None]
  - NECK PAIN [None]
  - NERVOUSNESS [None]
  - NIGHTMARE [None]
  - OBSESSIVE-COMPULSIVE DISORDER [None]
  - OEDEMA PERIPHERAL [None]
  - PAIN [None]
  - PAIN IN EXTREMITY [None]
  - PARANOIA [None]
  - PERSONALITY DISORDER [None]
  - PHARYNGOLARYNGEAL PAIN [None]
  - POLYSUBSTANCE ABUSE [None]
  - POST-TRAUMATIC STRESS DISORDER [None]
  - PROSTATITIS [None]
  - PSYCHIATRIC SYMPTOM [None]
  - PSYCHOMOTOR HYPERACTIVITY [None]
  - PSYCHOTIC DISORDER [None]
  - RESPIRATORY ALKALOSIS [None]
  - RHINORRHOEA [None]
  - ROAD TRAFFIC ACCIDENT [None]
  - SEDATION [None]
  - SELF INJURIOUS BEHAVIOUR [None]
  - SELF-INJURIOUS IDEATION [None]
  - SUICIDAL IDEATION [None]
  - TACHYCARDIA [None]
  - TEARFULNESS [None]
  - TINNITUS [None]
  - WHITE BLOOD CELL COUNT INCREASED [None]
